FAERS Safety Report 13827364 (Version 1)
Quarter: 2017Q3

REPORT INFORMATION
  Report Type: Spontaneous
  Country: US (occurrence: US)
  Receive Date: 20170802
  Receipt Date: 20170802
  Transmission Date: 20171127
  Serious: No
  Sender: FDA-Public Use
  Company Number: US-ROCHE-653269

PATIENT
  Sex: Female

DRUGS (4)
  1. LIPITOR [Concomitant]
     Active Substance: ATORVASTATIN CALCIUM
     Indication: BLOOD CHOLESTEROL
     Dosage: DOSE: 10, FREQUENCY: QD, START DATE: 3 YEARS
     Route: 048
  2. LEVOTHYROXINE. [Concomitant]
     Active Substance: LEVOTHYROXINE
     Indication: HYPOTHYROIDISM
     Dosage: DOSE: .25, FREQUENCY: QD, START DATE: 3 YEARS
     Route: 048
  3. BONIVA [Suspect]
     Active Substance: IBANDRONATE SODIUM
     Indication: OSTEOPOROSIS
     Dosage: OTHER INDICATION : OSTEOPENIA. DURATION: 1.5 YEARS
     Route: 048
     Dates: start: 20061013, end: 20070820
  4. DIOVAN HCT [Concomitant]
     Active Substance: HYDROCHLOROTHIAZIDE\VALSARTAN
     Indication: HYPERTENSION
     Dosage: DRUG REPORTED: DIOVAN HCT; DOSE: 160/25, FREQUENCY: QD, START DATE: 3 YEARS
     Route: 048

REACTIONS (1)
  - Tooth disorder [Unknown]
